FAERS Safety Report 9933808 (Version 2)
Quarter: 2014Q1

REPORT INFORMATION
  Report Type: Report from Study
  Country: US (occurrence: US)
  Receive Date: 20140228
  Receipt Date: 20140228
  Transmission Date: 20141002
  Serious: No
  Sender: FDA-Public Use
  Company Number: US-MYLANLABS-2013S1015508

PATIENT
  Age: 31 Year
  Sex: Female
  Weight: 68.04 kg

DRUGS (2)
  1. CLARAVIS [Suspect]
     Indication: ACNE CYSTIC
     Dates: start: 20130407, end: 2013
  2. AMNESTEEM CAPSULES [Suspect]
     Indication: ACNE CYSTIC
     Dates: start: 201306, end: 20130709

REACTIONS (3)
  - Rash [Recovered/Resolved]
  - Skin ulcer [Recovered/Resolved]
  - Dry skin [Recovered/Resolved]
